FAERS Safety Report 6528591-5 (Version None)
Quarter: 2010Q1

REPORT INFORMATION
  Report Type: 
  Country: None (occurrence: None)
  Receive Date: 20100106
  Receipt Date: 20091222
  Transmission Date: 20100710
  Serious: Yes (Death)
  Sender: FDA-Public Use
  Company Number: PHHO2006CA16267

PATIENT
  Sex: Female
  Weight: 51 kg

DRUGS (9)
  1. BLINDED ACLASTA/ZOLEDRONATE T29581+A+SOLINJ [Suspect]
     Indication: OSTEOPOROSIS POSTMENOPAUSAL
     Dosage: DOUBLE-BLIND
     Route: 042
     Dates: start: 20050823
  2. BLINDED NO TREATMENT RECEIVED NOMED [Suspect]
     Indication: OSTEOPOROSIS POSTMENOPAUSAL
     Dosage: DOUBLE-BLIND
     Route: 042
     Dates: start: 20050823
  3. BLINDED PLACEBO PLACEBO [Suspect]
     Indication: OSTEOPOROSIS POSTMENOPAUSAL
     Dosage: DOUBLE-BLIND
     Route: 042
     Dates: start: 20050823
  4. BLINDED ACLASTA/ZOLEDRONATE T29581+A+SOLINJ [Suspect]
     Dosage: DOUBLE BLIND
     Route: 042
     Dates: start: 20060823
  5. BLINDED NO TREATMENT RECEIVED NOMED [Suspect]
     Dosage: DOUBLE BLIND
     Route: 042
     Dates: start: 20060823
  6. BLINDED PLACEBO PLACEBO [Suspect]
     Dosage: DOUBLE BLIND
     Route: 042
     Dates: start: 20060823
  7. CALCIUM [Concomitant]
     Indication: OSTEOPOROSIS POSTMENOPAUSAL
  8. VITAMIN D [Concomitant]
     Indication: OSTEOPOROSIS POSTMENOPAUSAL
  9. AMILOZID [Concomitant]
     Indication: HYPERTENSION
     Route: 048
     Dates: start: 20040719

REACTIONS (1)
  - CEREBRAL HAEMORRHAGE [None]
